FAERS Safety Report 7554545-6 (Version None)
Quarter: 2011Q2

REPORT INFORMATION
  Report Type: 
  Country: None (occurrence: None)
  Receive Date: 20110617
  Receipt Date: 20110607
  Transmission Date: 20111010
  Serious: Yes (Hospitalization)
  Sender: FDA-Public Use
  Company Number: US-ROCHE-781764

PATIENT
  Sex: Female

DRUGS (7)
  1. LEUCOVORIN CALCIUM [Suspect]
     Indication: RECTAL CANCER
     Dosage: LEUCOVORIN 400MG/M2 IV OVER 2 HRS ON DAY 1 X 12 CYCLES.
     Route: 042
     Dates: start: 20100406
  2. BEVACIZUMAB [Suspect]
     Indication: RECTAL CANCER
     Dosage: 5MG/KG IV OVER 30-90 MIN Q OTHER WEEK ON DAYS 1,15, 29 DURING RT(PREOPERATIVE CHEMORADIOTHERAPY)
     Route: 042
     Dates: start: 20100406
  3. OXALIPLATIN [Suspect]
     Indication: RECTAL CANCER
     Dosage: 5MG/KG IV OVER 30-90 MIN Q OTHER WEEK ON DAYS 1,15, 29 DURING RT(PREOPERATIVE CHEMORADIOTHERAPY)
     Route: 042
  4. OXALIPLATIN [Suspect]
     Dosage: 85MG/M2 IV OVER 2 HRS ON DAY 1 X 9 CYCLES.
     Route: 042
     Dates: start: 20100406
  5. CAPECITABINE [Suspect]
     Indication: RECTAL CANCER
     Dosage: CAPECITABINE 825MG/M2 PO Q 12 HRS 5 DAYS/ WEEK STARTING ON DAY 1 TO RT
     Route: 048
     Dates: start: 20100406
  6. BEVACIZUMAB [Suspect]
     Dosage: 5MG/KG IV OVER 90-30 MINUTES ON DAY 1 X 12 CYCLES
     Route: 042
  7. FLUOROURACIL [Suspect]
     Indication: RECTAL CANCER
     Dosage: 5FU 400MG/M2 IVP ON DAY 1X12 CYCLES. 5FU 2.4GM/M2 IV CONT INF OVER 46 HRS ON DAY 1X12 CYCLES.
     Route: 042
     Dates: start: 20100406

REACTIONS (3)
  - HYPERKALAEMIA [None]
  - DEHYDRATION [None]
  - DIARRHOEA [None]
